FAERS Safety Report 9697188 (Version 1)
Quarter: 2013Q4

REPORT INFORMATION
  Report Type: Spontaneous
  Country: SE (occurrence: SE)
  Receive Date: 20131120
  Receipt Date: 20131120
  Transmission Date: 20140711
  Serious: Yes (Other)
  Sender: FDA-Public Use
  Company Number: SE-MERCK-1311SWE006918

PATIENT
  Age: 69 Year
  Sex: Female

DRUGS (1)
  1. EZETROL [Suspect]
     Dosage: 10 MG DAILY
     Route: 048
     Dates: start: 20121011, end: 20121228

REACTIONS (2)
  - Arthritis [Recovered/Resolved]
  - Arthralgia [Recovered/Resolved]
